FAERS Safety Report 6654651-4 (Version None)
Quarter: 2010Q1

REPORT INFORMATION
  Report Type: 
  Country: None (occurrence: None)
  Receive Date: 20100326
  Receipt Date: 20100319
  Transmission Date: 20100710
  Serious: Yes (Death, Hospitalization, Other)
  Sender: FDA-Public Use
  Company Number: US-AMGEN-QUU396047

PATIENT
  Sex: Female
  Weight: 92.6 kg

DRUGS (8)
  1. NPLATE [Suspect]
     Indication: IDIOPATHIC THROMBOCYTOPENIC PURPURA
     Route: 058
     Dates: start: 20090126, end: 20090618
  2. IMMU-G [Concomitant]
     Dates: start: 20090116
  3. ALBUTEROL [Concomitant]
     Route: 055
  4. AMIODARONE HCL [Concomitant]
  5. LEXAPRO [Concomitant]
  6. GLIMEPIRIDE [Concomitant]
  7. K-DUR [Concomitant]
  8. AMBIEN [Concomitant]

REACTIONS (9)
  - ACUTE RESPIRATORY DISTRESS SYNDROME [None]
  - ANAEMIA [None]
  - CARDIAC FAILURE CONGESTIVE [None]
  - CHRONIC OBSTRUCTIVE PULMONARY DISEASE [None]
  - DYSPNOEA [None]
  - OEDEMA [None]
  - PLEURAL EFFUSION [None]
  - PNEUMONIA [None]
  - RENAL FAILURE CHRONIC [None]
